FAERS Safety Report 15597067 (Version 1)
Quarter: 2018Q4

REPORT INFORMATION
  Report Type: Spontaneous
  Country: FR (occurrence: FR)
  Receive Date: 20181108
  Receipt Date: 20181108
  Transmission Date: 20190205
  Serious: Yes (Hospitalization)
  Sender: FDA-Public Use
  Company Number: FR-NAPPMUNDI-GBR-2018-0061246

PATIENT
  Age: 29 Year
  Sex: Female
  Weight: 46 kg

DRUGS (4)
  1. OXYCODONE HYDROCHLORIDE. [Suspect]
     Active Substance: OXYCODONE HYDROCHLORIDE
     Indication: PRODUCT USED FOR UNKNOWN INDICATION
     Dosage: 10 MG, DAILY
     Route: 048
  2. NICOTIANA TABACUM [Suspect]
     Active Substance: TOBACCO LEAF
     Indication: TOBACCO USER
     Dosage: NON RENSEIGNEE
     Route: 055
  3. CANNABIS [Suspect]
     Active Substance: CANNABIS SATIVA SUBSP. INDICA TOP
     Indication: DRUG DEPENDENCE
     Dosage: NON RENSEIGNEE
     Route: 055
  4. COCAINE [Suspect]
     Active Substance: COCAINE
     Indication: DRUG ABUSE
     Dosage: NON RENSEIGNEE
     Route: 065

REACTIONS (3)
  - Drug dependence [Recovering/Resolving]
  - Drug dependence [Recovered/Resolved]
  - Drug abuse [Recovered/Resolved]
